FAERS Safety Report 22139468 (Version 1)
Quarter: 2023Q1

REPORT INFORMATION
  Report Type: Spontaneous
  Country: US (occurrence: US)
  Receive Date: 20230327
  Receipt Date: 20230327
  Transmission Date: 20230417
  Serious: No
  Sender: FDA-Public Use
  Company Number: ALC2022US001450

PATIENT
  Sex: Female

DRUGS (2)
  1. PATADAY ONCE DAILY RELIEF [Suspect]
     Active Substance: OLOPATADINE HYDROCHLORIDE
     Indication: Eye pruritus
     Dosage: UNKNOWN
     Route: 047
  2. PATADAY ONCE DAILY RELIEF [Suspect]
     Active Substance: OLOPATADINE HYDROCHLORIDE
     Indication: Dry eye

REACTIONS (5)
  - Product deposit [Recovered/Resolved]
  - Product container issue [Unknown]
  - Drug ineffective [Recovered/Resolved]
  - Eye discharge [Recovered/Resolved]
  - Eyelid margin crusting [Recovered/Resolved]
